FAERS Safety Report 7472693-6 (Version None)
Quarter: 2011Q2

REPORT INFORMATION
  Report Type: 
  Country: None (occurrence: None)
  Receive Date: 20110511
  Receipt Date: 20110428
  Transmission Date: 20111010
  Serious: Yes (Hospitalization, Other)
  Sender: FDA-Public Use
  Company Number: GB-JNJFOC-20110403212

PATIENT
  Age: 78 Year
  Sex: Female

DRUGS (2)
  1. CITALOPRAM HYDROBROMIDE [Suspect]
     Indication: DEPRESSION
     Route: 048
  2. TRAMADOL HYDROCHLORIDE [Interacting]
     Indication: PAIN
     Route: 048

REACTIONS (4)
  - EXTENSOR PLANTAR RESPONSE [None]
  - DRUG INTERACTION [None]
  - SEROTONIN SYNDROME [None]
  - TACHYCARDIA [None]
